FAERS Safety Report 11549485 (Version 4)
Quarter: 2016Q1

REPORT INFORMATION
  Report Type: Spontaneous
  Country: JP (occurrence: JP)
  Receive Date: 20150924
  Receipt Date: 20160126
  Transmission Date: 20160525
  Serious: Yes (Disabling, Other)
  Sender: FDA-Public Use
  Company Number: JP-REGENERON PHARMACEUTICALS, INC.-2015-12442

PATIENT
  Age: 76 Year
  Sex: Male

DRUGS (7)
  1. EYLEA [Suspect]
     Active Substance: AFLIBERCEPT
     Dosage: 2 MG, ONCE (OS)
     Route: 031
     Dates: start: 20130402, end: 20130402
  2. EYLEA [Suspect]
     Active Substance: AFLIBERCEPT
     Dosage: 2 MG, ONCE (OS)
     Route: 031
     Dates: start: 20130109, end: 20130109
  3. EYLEA [Suspect]
     Active Substance: AFLIBERCEPT
     Dosage: 2 MG, ONCE (OD)
     Route: 031
     Dates: start: 20130213, end: 20130213
  4. EYLEA [Suspect]
     Active Substance: AFLIBERCEPT
     Dosage: 2 MG, ONCE (OD)
     Route: 031
     Dates: start: 20130408, end: 20130408
  5. EYLEA [Suspect]
     Active Substance: AFLIBERCEPT
     Indication: NEOVASCULAR AGE-RELATED MACULAR DEGENERATION
     Dosage: 2 MG, ONCE (OD)
     Route: 031
     Dates: start: 20121219, end: 20121219
  6. EYLEA [Suspect]
     Active Substance: AFLIBERCEPT
     Dosage: 2 MG, ONCE (OS)
     Route: 031
     Dates: start: 20130205, end: 20130205
  7. CRAVIT [Concomitant]
     Active Substance: LEVOFLOXACIN
     Dosage: QID
     Route: 047
     Dates: start: 20130211, end: 20130216

REACTIONS (2)
  - Retinal vein occlusion [Not Recovered/Not Resolved]
  - Visual acuity reduced [Not Recovered/Not Resolved]

NARRATIVE: CASE EVENT DATE: 201304
